FAERS Safety Report 19108079 (Version 1)
Quarter: 2021Q2

REPORT INFORMATION
  Report Type: Spontaneous
  Country: US (occurrence: US)
  Receive Date: 20210408
  Receipt Date: 20210408
  Transmission Date: 20210717
  Serious: Yes (Other)
  Sender: FDA-Public Use
  Company Number: US-SA-2021SA112456

PATIENT
  Age: 70 Year
  Sex: Female

DRUGS (6)
  1. AUBAGIO [Suspect]
     Active Substance: TERIFLUNOMIDE
     Indication: MULTIPLE SCLEROSIS
     Dosage: 14 MG, QD
     Dates: start: 20160201
  2. ELIQUIS [Concomitant]
     Active Substance: APIXABAN
  3. SPIRONOLACTONE. [Concomitant]
     Active Substance: SPIRONOLACTONE
  4. PANTOPRAZOLE [Concomitant]
     Active Substance: PANTOPRAZOLE
  5. DILTIAZEM. [Concomitant]
     Active Substance: DILTIAZEM
  6. FLECAINIDE ACETATE. [Concomitant]
     Active Substance: FLECAINIDE ACETATE

REACTIONS (2)
  - Atrial fibrillation [Unknown]
  - Gastric disorder [Unknown]
